FAERS Safety Report 6180730-4 (Version None)
Quarter: 2009Q2

REPORT INFORMATION
  Report Type: 
  Country: None (occurrence: None)
  Receive Date: 20090506
  Receipt Date: 20090428
  Transmission Date: 20091009
  Serious: Yes (Life-Threatening, Hospitalization)
  Sender: FDA-Public Use
  Company Number: CA-ROCHE-630360

PATIENT
  Sex: Female

DRUGS (1)
  1. CAPECITABINE [Suspect]
     Route: 048
     Dates: start: 20080821

REACTIONS (1)
  - DISEASE PROGRESSION [None]
